FAERS Safety Report 5530942-5 (Version None)
Quarter: 2007Q4

REPORT INFORMATION
  Report Type: 
  Country: None (occurrence: None)
  Receive Date: 20071130
  Receipt Date: 20071119
  Transmission Date: 20080405
  Serious: Yes (Other)
  Sender: FDA-Public Use
  Company Number: US-PFIZER INC-2007071100

PATIENT
  Sex: Female
  Weight: 3.6 kg

DRUGS (3)
  1. ZOLOFT [Suspect]
     Indication: POSTPARTUM DEPRESSION
     Dates: start: 20051201, end: 20060101
  2. SERTRALINE [Suspect]
     Indication: POSTPARTUM DEPRESSION
     Dates: start: 20060101, end: 20070622
  3. VITAMINS [Concomitant]

REACTIONS (7)
  - CYANOSIS [None]
  - DRUG EXPOSURE DURING PREGNANCY [None]
  - FEEDING DISORDER OF INFANCY OR EARLY CHILDHOOD [None]
  - NEONATAL DISORDER [None]
  - PYLORIC STENOSIS [None]
  - THERMAL BURN [None]
  - VOCAL CORD PARESIS [None]
